FAERS Safety Report 9645827 (Version 1)
Quarter: 2013Q4

REPORT INFORMATION
  Report Type: Spontaneous
  Country: US (occurrence: US)
  Receive Date: 20131025
  Receipt Date: 20131025
  Transmission Date: 20140711
  Serious: No
  Sender: FDA-Public Use
  Company Number: US-MYLANLABS-2013S1019379

PATIENT
  Age: 55 Year
  Sex: Female

DRUGS (2)
  1. RIZATRIPTAN BENZOATE ORALLY DISINTEGRATING TABLETS [Suspect]
     Indication: MIGRAINE
     Route: 048
     Dates: start: 201308
  2. PRAVASTATIN [Concomitant]
     Indication: BLOOD CHOLESTEROL INCREASED
     Route: 048
     Dates: start: 201305

REACTIONS (2)
  - Drug ineffective [Not Recovered/Not Resolved]
  - Migraine [Not Recovered/Not Resolved]
